FAERS Safety Report 6339867-9 (Version None)
Quarter: 2009Q3

REPORT INFORMATION
  Report Type: 
  Country: None (occurrence: None)
  Receive Date: 20090903
  Receipt Date: 20090821
  Transmission Date: 20100115
  Serious: Yes (Other)
  Sender: FDA-Public Use
  Company Number: CA-PFIZER INC-2009236546

PATIENT

DRUGS (1)
  1. NICOTINE [Suspect]
     Dosage: 20.5 CARTRIDGES OVER UNSPECIFIED PERIOD

REACTIONS (3)
  - INTENTIONAL DRUG MISUSE [None]
  - LUNG NEOPLASM MALIGNANT [None]
  - PRODUCT QUALITY ISSUE [None]
